FAERS Safety Report 13117608 (Version 1)
Quarter: 2017Q1

REPORT INFORMATION
  Report Type: Spontaneous
  Country: US (occurrence: US)
  Receive Date: 20170116
  Receipt Date: 20170116
  Transmission Date: 20170428
  Serious: No
  Sender: FDA-Public Use
  Company Number: US-GLAXOSMITHKLINE-US2017004713

PATIENT

DRUGS (1)
  1. ABREVA [Suspect]
     Active Substance: DOCOSANOL
     Indication: PROPHYLAXIS
     Dosage: UNK,  THEY USE IT AT LEAST ONCE A MONTH

REACTIONS (2)
  - Intentional product use issue [Unknown]
  - Oral herpes [Unknown]
